FAERS Safety Report 15622372 (Version 2)
Quarter: 2018Q4

REPORT INFORMATION
  Report Type: Spontaneous
  Country: US (occurrence: US)
  Receive Date: 20181115
  Receipt Date: 20181129
  Transmission Date: 20190205
  Serious: Yes (Other)
  Sender: FDA-Public Use
  Company Number: US-NEPHRON STERILE COMPOUNDING CENTER-2058907

PATIENT
  Age: 28 Year
  Sex: Female
  Weight: 110 kg

DRUGS (7)
  1. ALBUTEROL. [Concomitant]
     Active Substance: ALBUTEROL
  2. MIDAZOLAM [Concomitant]
     Active Substance: MIDAZOLAM HYDROCHLORIDE
  3. LIDOCAINE. [Concomitant]
     Active Substance: LIDOCAINE
  4. PROPOFOL. [Concomitant]
     Active Substance: PROPOFOL
  5. FENTANYL. [Concomitant]
     Active Substance: FENTANYL
  6. ROCURONIUM BROMIDE. [Suspect]
     Active Substance: ROCURONIUM BROMIDE
     Indication: SURGERY
     Route: 040
     Dates: start: 20181026, end: 20181026
  7. STERIODS (UNSPECIFIED) [Concomitant]

REACTIONS (1)
  - Bronchospasm [Recovered/Resolved]

NARRATIVE: CASE EVENT DATE: 20181026
